FAERS Safety Report 5560116-3 (Version None)
Quarter: 2007Q4

REPORT INFORMATION
  Report Type: 
  Country: None (occurrence: None)
  Receive Date: 20071214
  Receipt Date: 20071023
  Transmission Date: 20080405
  Serious: No
  Sender: FDA-Public Use
  Company Number: US-ABBOTT-07P-163-0422252-00

PATIENT
  Sex: Male
  Weight: 90.9 kg

DRUGS (4)
  1. HUMIRA [Suspect]
     Indication: PSORIATIC ARTHROPATHY
     Route: 058
     Dates: start: 20071023
  2. VICODIN [Concomitant]
     Indication: ARTHRALGIA
     Route: 048
  3. OXYCODONE HYDROCHLORIDE [Concomitant]
     Indication: ARTHRALGIA
     Route: 048
  4. AZATHIOPRINE [Concomitant]
     Indication: PSORIATIC ARTHROPATHY
     Route: 048

REACTIONS (3)
  - ACCIDENTAL EXPOSURE [None]
  - INJECTION SITE IRRITATION [None]
  - INJECTION SITE PAIN [None]
